FAERS Safety Report 10444114 (Version 1)
Quarter: 2014Q3

REPORT INFORMATION
  Report Type: Spontaneous
  Country: US (occurrence: US)
  Receive Date: 20140910
  Receipt Date: 20140910
  Transmission Date: 20150326
  Serious: No
  Sender: FDA-Public Use
  Company Number: US-VIIV HEALTHCARE LIMITED-A1082683A

PATIENT
  Age: 54 Year
  Sex: Male

DRUGS (2)
  1. MULTIVITAMIN WITH MINERALS [Suspect]
     Active Substance: MINERALS\VITAMINS
  2. TIVICAY [Suspect]
     Active Substance: DOLUTEGRAVIR SODIUM
     Indication: HIV INFECTION
     Dosage: 50MG TWICE PER DAY
     Route: 048
     Dates: start: 201404

REACTIONS (1)
  - Drug interaction [Unknown]

NARRATIVE: CASE EVENT DATE: 201404
